FAERS Safety Report 5002397-0 (Version None)
Quarter: 2006Q2

REPORT INFORMATION
  Report Type: 
  Country: None (occurrence: None)
  Receive Date: 20060512
  Receipt Date: 20060428
  Transmission Date: 20061013
  Serious: Yes (Other)
  Sender: FDA-Public Use
  Company Number: US200605000303

PATIENT
  Age: 74 Year
  Sex: Female
  Weight: 81.6 kg

DRUGS (6)
  1. PROZAC [Suspect]
     Indication: STRESS
     Dosage: 20 MG, DAILY (1/D)
     Dates: start: 19960101
  2. CYMBALTA [Suspect]
     Indication: ARTHRALGIA
     Dosage: 30 MG, DAILY (1/D)
     Dates: start: 20060418, end: 20060428
  3. SYNTHROID [Concomitant]
  4. B COMPLEX (NICOTINAMIDE, PYRIDOXINE HYDROCHLORIDE, RIBOFLAVIN, THIAMIN [Concomitant]
  5. MULTIVITAMINS (ASCORBIC ACID, ERGOCALCIFEROL, FOLIC ACID, NICOTINAMIDE [Concomitant]
  6. ESTROGEL [Concomitant]

REACTIONS (6)
  - FATIGUE [None]
  - NIGHT SWEATS [None]
  - PHARMACEUTICAL PRODUCT COMPLAINT [None]
  - SOMNOLENCE [None]
  - TINNITUS [None]
  - UTERINE CANCER [None]
